FAERS Safety Report 15392685 (Version 1)
Quarter: 2018Q3

REPORT INFORMATION
  Report Type: Spontaneous
  Country: US (occurrence: US)
  Receive Date: 20180911
  Receipt Date: 20180911
  Transmission Date: 20181010
  Serious: No
  Sender: FDA-Public Use
  Company Number: None

PATIENT
  Age: 70 Year
  Sex: Female
  Weight: 58.97 kg

DRUGS (4)
  1. LOSARTAN. [Suspect]
     Active Substance: LOSARTAN
     Indication: HYPERTENSION
     Dosage: ?          QUANTITY:1 DF DOSAGE FORM;?
     Route: 048
     Dates: start: 20180723, end: 20180802
  2. ATORVASTATIN [Concomitant]
     Active Substance: ATORVASTATIN
  3. CENTRUM SILVER MULTIVITAMIN/MULTIMINERAL SUPPLEMENT ADULT 50+ [Concomitant]
  4. CLOPIDOGREL [Concomitant]
     Active Substance: CLOPIDOGREL BISULFATE

REACTIONS (2)
  - Dysphonia [None]
  - Cough [None]

NARRATIVE: CASE EVENT DATE: 20180723
